FAERS Safety Report 7982449-3 (Version None)
Quarter: 2011Q4

REPORT INFORMATION
  Report Type: 
  Country: None (occurrence: None)
  Receive Date: 20111215
  Receipt Date: 20111201
  Transmission Date: 20120403
  Serious: Yes (Hospitalization, Other)
  Sender: FDA-Public Use
  Company Number: PL-ROCHE-1009725

PATIENT
  Sex: Female

DRUGS (6)
  1. LUCENTIS [Suspect]
     Dosage: REGIMEN 4
     Route: 050
  2. LUCENTIS [Suspect]
     Dosage: REGIMEN 5
     Route: 050
     Dates: start: 20100501
  3. LUCENTIS [Suspect]
     Indication: AGE-RELATED MACULAR DEGENERATION
     Dosage: REGIMEN 1
     Route: 050
     Dates: start: 20080101
  4. LUCENTIS [Suspect]
     Dosage: REGIMEN 2
     Route: 050
  5. LUCENTIS [Suspect]
     Dosage: REGIMEN 6
     Route: 050
     Dates: start: 20100601, end: 20100101
  6. LUCENTIS [Suspect]
     Dosage: REGIMEN 3
     Route: 050

REACTIONS (3)
  - DETACHMENT OF RETINAL PIGMENT EPITHELIUM [None]
  - VISUAL ACUITY REDUCED [None]
  - RETINAL PIGMENT EPITHELIAL TEAR [None]
